FAERS Safety Report 20421649 (Version 1)
Quarter: 2022Q1

REPORT INFORMATION
  Report Type: Spontaneous
  Country: US (occurrence: US)
  Receive Date: 20220203
  Receipt Date: 20220203
  Transmission Date: 20220424
  Serious: No
  Sender: FDA-Public Use
  Company Number: US-GW PHARMA-202201USGW00431

PATIENT
  Age: 14 Year
  Sex: Female
  Weight: 50 kg

DRUGS (4)
  1. EPIDIOLEX [Suspect]
     Active Substance: CANNABIDIOL
     Indication: Angelman^s syndrome
     Dosage: UNK
     Route: 048
  2. VALPROIC ACID [Suspect]
     Active Substance: VALPROIC ACID
     Indication: Angelman^s syndrome
     Dosage: UNK, 5 DOSES
     Dates: start: 202201, end: 202201
  3. CLOBAZAM [Concomitant]
     Active Substance: CLOBAZAM
     Indication: Angelman^s syndrome
     Dosage: UNK
     Route: 065
  4. LACOSAMIDE [Concomitant]
     Active Substance: LACOSAMIDE
     Indication: Angelman^s syndrome
     Dosage: UNK
     Route: 065

REACTIONS (4)
  - Hyperammonaemia [Unknown]
  - Seizure [Unknown]
  - Somnolence [Unknown]
  - Product use in unapproved indication [Unknown]

NARRATIVE: CASE EVENT DATE: 20220101
